FAERS Safety Report 19049988 (Version 1)
Quarter: 2021Q1

REPORT INFORMATION
  Report Type: Spontaneous
  Country: US (occurrence: US)
  Receive Date: 20210323
  Receipt Date: 20210323
  Transmission Date: 20210420
  Serious: No
  Sender: FDA-Public Use
  Company Number: US-GALDERMA-US2021001365

PATIENT
  Age: 33 Year
  Sex: Female

DRUGS (6)
  1. PROACTIV MD ADAPALENE ACNE TREATMENT [Suspect]
     Active Substance: ADAPALENE
     Indication: ACNE
     Dosage: 0.1%
     Route: 061
     Dates: start: 20201008, end: 202010
  2. PROACTIV MD ULTRA GENTLE CLEANSER [Concomitant]
     Indication: ACNE
     Route: 061
     Dates: start: 20201008, end: 202010
  3. PROACTIV ADVANCED DARK SPOT CORRECTING SERUM [Concomitant]
     Active Substance: HYDROQUINONE
     Indication: ACNE
     Route: 061
     Dates: start: 20201008, end: 202010
  4. PROACTIV MD ULTRA GENTLE CLEANSER [Concomitant]
     Indication: SKIN HYPERPIGMENTATION
  5. PROACTIV MD ADAPALENE ACNE TREATMENT [Suspect]
     Active Substance: ADAPALENE
     Indication: SKIN HYPERPIGMENTATION
  6. PROACTIV ADVANCED DARK SPOT CORRECTING SERUM [Concomitant]
     Active Substance: HYDROQUINONE
     Indication: SKIN HYPERPIGMENTATION

REACTIONS (3)
  - Dry skin [Recovered/Resolved]
  - Pruritus [Recovered/Resolved]
  - Seborrhoea [Recovered/Resolved]

NARRATIVE: CASE EVENT DATE: 20201022
